FAERS Safety Report 6455730-7 (Version None)
Quarter: 2009Q4

REPORT INFORMATION
  Report Type: 
  Country: None (occurrence: None)
  Receive Date: 20091125
  Receipt Date: 20091109
  Transmission Date: 20100525
  Serious: No
  Sender: FDA-Public Use
  Company Number: US-ABBOTT-09P-163-0607878-00

PATIENT
  Sex: Male
  Weight: 99.88 kg

DRUGS (4)
  1. SIMCOR [Suspect]
     Indication: CAROTID ARTERIOSCLEROSIS
     Dosage: 500/20 MILLIGRAMS
     Dates: start: 20091021
  2. SIMCOR [Suspect]
     Indication: FAMILIAL RISK FACTOR
  3. ASPIRIN [Concomitant]
     Indication: DRUG USE FOR UNKNOWN INDICATION
     Route: 048
  4. ZOLOFT [Concomitant]
     Indication: DRUG USE FOR UNKNOWN INDICATION
     Route: 048

REACTIONS (2)
  - FEELING HOT [None]
  - FLUSHING [None]
